FAERS Safety Report 6394881-2 (Version None)
Quarter: 2009Q4

REPORT INFORMATION
  Report Type: 
  Country: None (occurrence: None)
  Receive Date: 20091009
  Receipt Date: 20091002
  Transmission Date: 20100525
  Serious: Yes (Hospitalization)
  Sender: FDA-Public Use
  Company Number: CH-BAYER-200934725GPV

PATIENT
  Age: 66 Year
  Sex: Male

DRUGS (2)
  1. SORAFENIB [Suspect]
     Indication: COLON CANCER
     Route: 048
     Dates: start: 20090421, end: 20090508
  2. CAPECITABINE [Suspect]
     Indication: COLON CANCER
     Route: 048
     Dates: start: 20090421, end: 20090528

REACTIONS (1)
  - ANASTOMOTIC LEAK [None]
